FAERS Safety Report 6748391-0 (Version None)
Quarter: 2010Q2

REPORT INFORMATION
  Report Type: 
  Country: None (occurrence: None)
  Receive Date: 20100601
  Receipt Date: 20100311
  Transmission Date: 20101027
  Serious: Yes (Other)
  Sender: FDA-Public Use
  Company Number: US-ASTRAZENECA-2008UW06943

PATIENT
  Age: 43 Year
  Sex: Male
  Weight: 109.8 kg

DRUGS (6)
  1. SEROQUEL [Suspect]
     Indication: INSOMNIA
     Dosage: 25 MG 2 TABLETS AT BED TIME
     Route: 048
     Dates: start: 20030723, end: 20070401
  2. SEROQUEL [Suspect]
     Indication: DEPRESSION
     Dosage: 25 MG 2 TABLETS AT BED TIME
     Route: 048
     Dates: start: 20030723, end: 20070401
  3. THORAZINE [Concomitant]
  4. PAXIL CR [Concomitant]
     Dosage: 10MG, 12.5MG DISPENSED
     Dates: start: 20030821
  5. FUROSEMIDE [Concomitant]
     Dates: start: 20030818
  6. PROTONIX [Concomitant]
     Dates: start: 20030820

REACTIONS (7)
  - BLOOD CHOLESTEROL INCREASED [None]
  - CATHETERISATION CARDIAC [None]
  - CHRONIC OBSTRUCTIVE PULMONARY DISEASE [None]
  - DIABETES MELLITUS [None]
  - HEPATITIS B [None]
  - HEPATITIS C [None]
  - ILL-DEFINED DISORDER [None]
